FAERS Safety Report 15869673 (Version 2)
Quarter: 2019Q1

REPORT INFORMATION
  Report Type: Spontaneous
  Country: US (occurrence: US)
  Receive Date: 20190125
  Receipt Date: 20190307
  Transmission Date: 20190417
  Serious: No
  Sender: FDA-Public Use
  Company Number: US-PFIZER INC-2019030971

PATIENT
  Age: 58 Year
  Sex: Female
  Weight: 64 kg

DRUGS (2)
  1. PREMARIN [Suspect]
     Active Substance: ESTROGENS, CONJUGATED
     Indication: VULVOVAGINAL BURNING SENSATION
  2. PREMARIN [Suspect]
     Active Substance: ESTROGENS, CONJUGATED
     Indication: ATROPHIC VULVOVAGINITIS
     Dosage: 0.25 MG, 1X/DAY [DURING THE DAY]
     Route: 067
     Dates: start: 20190110

REACTIONS (6)
  - Fluid retention [Unknown]
  - Vulvovaginal burning sensation [Recovering/Resolving]
  - Urticaria [Recovered/Resolved]
  - Rash [Recovered/Resolved]
  - Dysuria [Unknown]
  - Condition aggravated [Recovering/Resolving]

NARRATIVE: CASE EVENT DATE: 20190113
